FAERS Safety Report 25996310 (Version 1)
Quarter: 2025Q4

REPORT INFORMATION
  Report Type: Spontaneous
  Country: US (occurrence: US)
  Receive Date: 20251104
  Receipt Date: 20251104
  Transmission Date: 20260118
  Serious: No
  Sender: MERCK SHARP & DOHME LLC
  Company Number: US-009507513-2346383

PATIENT
  Age: 76 Year
  Sex: Female

DRUGS (2)
  1. IVERMECTIN [Suspect]
     Active Substance: IVERMECTIN
     Indication: Neurodermatitis
     Route: 048
  2. DOXYCYCLINE [Concomitant]
     Active Substance: DOXYCYCLINE
     Indication: Impetigo
     Route: 048

REACTIONS (1)
  - Product use in unapproved indication [Unknown]
